FAERS Safety Report 8549679-3 (Version None)
Quarter: 2012Q3

REPORT INFORMATION
  Report Type: 
  Country: None (occurrence: None)
  Receive Date: 20120730
  Receipt Date: 20120724
  Transmission Date: 20120928
  Serious: Yes (Other)
  Sender: FDA-Public Use
  Company Number: US-PFIZER INC-2012086392

PATIENT
  Sex: Female

DRUGS (17)
  1. LITHIUM CARBONATE [Suspect]
     Dosage: UNK
  2. MIRALAX [Concomitant]
  3. GEODON [Suspect]
     Dosage: UNK
  4. LASIX [Concomitant]
     Dosage: 80 MG, UNK
  5. ALLOPURINOL [Concomitant]
     Dosage: 300 MG, UNK
  6. THORAZINE [Suspect]
     Indication: MENTAL DISORDER
     Dosage: UNK, DAILY
     Dates: start: 20120401, end: 20120101
  7. TOPAMAX [Suspect]
     Dosage: 20 MG, UNK
  8. PRAVACHOL [Concomitant]
  9. CYMBALTA [Suspect]
     Dosage: UNK
  10. CYMBALTA [Suspect]
     Dosage: 120 MG, UNK
  11. SYNTHROID [Concomitant]
     Dosage: 120 MCG, UNK
  12. LISINOPRIL [Concomitant]
     Dosage: 20/25
  13. NEURONTIN [Suspect]
     Dosage: 1200 MG, 3X/DAY
     Dates: start: 20040401
  14. TOPAMAX [Suspect]
     Dosage: UNK
  15. KLONOPIN [Concomitant]
     Dosage: UNK
  16. FISH OIL [Concomitant]
  17. PREVACID [Concomitant]
     Dosage: 30 MG, UNK

REACTIONS (7)
  - MENTAL IMPAIRMENT [None]
  - TRANSIENT ISCHAEMIC ATTACK [None]
  - ASTHENIA [None]
  - DYSARTHRIA [None]
  - DYSPNOEA [None]
  - HYPOAESTHESIA [None]
  - MENTAL DISORDER [None]
